FAERS Safety Report 6781205-1 (Version None)
Quarter: 2010Q2

REPORT INFORMATION
  Report Type: 
  Country: None (occurrence: None)
  Receive Date: 20100621
  Receipt Date: 20100611
  Transmission Date: 20101027
  Serious: Yes (Life-Threatening)
  Sender: FDA-Public Use
  Company Number: JP-PFIZER INC-2010060511

PATIENT
  Age: 47 Year
  Sex: Male
  Weight: 89.5 kg

DRUGS (7)
  1. LIPITOR [Suspect]
     Indication: HYPERCHOLESTEROLAEMIA
     Dosage: 10 MG, 1X/DAY
     Route: 048
     Dates: start: 20100508
  2. AKINETON [Concomitant]
     Indication: SCHIZOPHRENIA
     Dosage: 1 MG, 2X/DAY
     Route: 048
     Dates: start: 20070831
  3. ALOSITOL [Concomitant]
     Indication: GOUT
     Dosage: 100 MG, 2X/DAY
     Route: 048
     Dates: start: 20070831
  4. ZYPREXA [Concomitant]
     Indication: SCHIZOPHRENIA
     Dosage: 10 MG, 1X/DAY
     Route: 048
     Dates: start: 20070831
  5. HIRNAMIN [Concomitant]
     Indication: SCHIZOPHRENIA
     Dosage: 25 MG, 1X/DAY
     Route: 048
     Dates: start: 20070831
  6. BENZALIN [Concomitant]
     Indication: INSOMNIA
     Dosage: 10 MG, 1X/DAY
     Route: 048
     Dates: start: 20070831
  7. RISPERDAL [Concomitant]
     Indication: SCHIZOPHRENIA
     Dosage: 2 MG, 2X/DAY
     Route: 048
     Dates: start: 20010831

REACTIONS (2)
  - DRUG INTERACTION [None]
  - SOMNOLENCE [None]
